FAERS Safety Report 18855831 (Version 2)
Quarter: 2021Q2

REPORT INFORMATION
  Report Type: Report from Study
  Country: None (occurrence: US)
  Receive Date: 20210205
  Receipt Date: 20210416
  Transmission Date: 20210717
  Serious: Yes (Other)
  Sender: FDA-Public Use
  Company Number: US-ABBVIE-21K-163-3755845-00

PATIENT
  Age: 18 Year
  Sex: Female
  Weight: 52.21 kg

DRUGS (2)
  1. HUMIRA [Suspect]
     Active Substance: ADALIMUMAB
     Route: 058
  2. HUMIRA [Suspect]
     Active Substance: ADALIMUMAB
     Indication: CROHN^S DISEASE
     Route: 058
     Dates: start: 20201207

REACTIONS (7)
  - Loss of consciousness [Recovered/Resolved]
  - Injection site haemorrhage [Recovered/Resolved]
  - Loss of consciousness [Unknown]
  - Nervousness [Not Recovered/Not Resolved]
  - Pain [Recovered/Resolved]
  - Incorrect dose administered [Unknown]
  - Fall [Unknown]

NARRATIVE: CASE EVENT DATE: 20210131
